FAERS Safety Report 4648900-1 (Version None)
Quarter: 2005Q2

REPORT INFORMATION
  Report Type: 
  Country: None (occurrence: None)
  Receive Date: 20050429
  Receipt Date: 20050303
  Transmission Date: 20051028
  Serious: Yes (Life-Threatening, Hospitalization, Other)
  Sender: FDA-Public Use
  Company Number: US-MERCK-0503USA00635

PATIENT
  Age: 79 Year
  Sex: Male
  Weight: 85 kg

DRUGS (19)
  1. VYTORIN [Suspect]
     Indication: HYPERLIPIDAEMIA
     Route: 048
     Dates: start: 20041008, end: 20050206
  2. VYTORIN [Suspect]
     Indication: CORONARY ARTERY DISEASE
     Route: 048
     Dates: start: 20041008, end: 20050206
  3. LOTENSIN [Suspect]
     Indication: HYPERTENSION
     Route: 048
     Dates: end: 20050207
  4. APRESOLINE [Concomitant]
     Indication: HYPERTENSION
     Route: 048
  5. TENORMIN [Suspect]
     Indication: HYPERTENSION
     Route: 048
     Dates: end: 20050207
  6. TENORMIN [Suspect]
     Indication: ANGINA PECTORIS
     Route: 048
     Dates: end: 20050207
  7. TICLID [Concomitant]
     Indication: CORONARY ARTERY DISEASE
     Route: 048
  8. TICLID [Concomitant]
     Indication: TRANSIENT ISCHAEMIC ATTACK
     Route: 048
  9. PROSCAR [Concomitant]
     Indication: BENIGN PROSTATIC HYPERPLASIA
     Route: 048
  10. FUROSEMIDE [Concomitant]
     Route: 048
  11. DIOVAN [Suspect]
     Route: 048
     Dates: end: 20050207
  12. NORVASC [Concomitant]
     Route: 048
  13. IMDUR [Concomitant]
     Route: 048
  14. FLOGAR [Concomitant]
     Route: 065
  15. GLIPIZIDE [Concomitant]
     Route: 048
  16. BACTRIM [Suspect]
     Indication: DYSURIA
     Route: 065
     Dates: end: 20050207
  17. ASPIRIN [Concomitant]
     Route: 048
  18. RESERPINE [Concomitant]
     Route: 048
  19. NITROGLYCERIN [Concomitant]
     Route: 065

REACTIONS (7)
  - BLOOD PRESSURE FLUCTUATION [None]
  - COUGH [None]
  - DECREASED APPETITE [None]
  - HYPERKALAEMIA [None]
  - RENAL FAILURE ACUTE [None]
  - RHABDOMYOLYSIS [None]
  - URINARY RETENTION [None]
